FAERS Safety Report 5377446-0 (Version None)
Quarter: 2007Q3

REPORT INFORMATION
  Report Type: 
  Country: None (occurrence: None)
  Receive Date: 20070703
  Receipt Date: 20070622
  Transmission Date: 20080115
  Serious: Yes (Death, Hospitalization)
  Sender: FDA-Public Use
  Company Number: US-AMGEN-US230685

PATIENT
  Age: 55 Year
  Sex: Female

DRUGS (5)
  1. ARANESP [Suspect]
     Indication: ANAEMIA OF MALIGNANT DISEASE
     Route: 065
     Dates: start: 20021201
  2. TACROLIMUS [Concomitant]
  3. IMMUNOSUPPRESSANTS [Concomitant]
  4. IRON [Concomitant]
  5. ANTIBIOTIC NOS [Concomitant]

REACTIONS (8)
  - ACUTE GRAFT VERSUS HOST DISEASE IN INTESTINE [None]
  - ACUTE GRAFT VERSUS HOST DISEASE IN LIVER [None]
  - ANAEMIA [None]
  - GRAFT VERSUS HOST DISEASE [None]
  - SURGICAL PROCEDURE REPEATED [None]
  - TRANSPLANT [None]
  - TRANSPLANT FAILURE [None]
  - VIRAL INFECTION [None]
